FAERS Safety Report 7132306-X (Version None)
Quarter: 2010Q4

REPORT INFORMATION
  Report Type: 
  Country: None (occurrence: None)
  Receive Date: 20101202
  Receipt Date: 20101129
  Transmission Date: 20110411
  Serious: Yes (Life-Threatening, Hospitalization, Other)
  Sender: FDA-Public Use
  Company Number: PHHO2010FR18073

PATIENT
  Sex: Male
  Weight: 78 kg

DRUGS (14)
  1. CERTICAN [Suspect]
     Indication: HEART TRANSPLANT
     Dosage: UNK
     Route: 048
     Dates: start: 20091124
  2. NEORAL [Suspect]
     Indication: HEART TRANSPLANT
     Dosage: UNK
     Route: 048
     Dates: start: 20090731
  3. PREDNISONE [Suspect]
     Dosage: UNK
     Dates: start: 20091010
  4. SOLUPRED [Concomitant]
  5. LASILIX [Concomitant]
  6. PHYSIOTENS [Concomitant]
  7. ELISOR [Concomitant]
  8. AMAREL [Concomitant]
  9. XATRAL [Concomitant]
  10. AVODART [Concomitant]
  11. LYRICA [Concomitant]
  12. VASTAREL [Concomitant]
  13. JANUVIA [Concomitant]
  14. TRIATEC [Concomitant]

REACTIONS (3)
  - APPENDICITIS PERFORATED [None]
  - HYPERTENSION [None]
  - PERITONITIS [None]
